FAERS Safety Report 6791387-3 (Version None)
Quarter: 2010Q2

REPORT INFORMATION
  Report Type: 
  Country: None (occurrence: None)
  Receive Date: 20100624
  Receipt Date: 20100303
  Transmission Date: 20101027
  Serious: No
  Sender: FDA-Public Use
  Company Number: US-BAUSCH-2010BL001295

PATIENT
  Age: 5 Year
  Sex: Male

DRUGS (1)
  1. BESIVANCE [Suspect]
     Indication: CONJUNCTIVITIS INFECTIVE
     Route: 047
     Dates: start: 20100301, end: 20100302

REACTIONS (1)
  - EYELID OEDEMA [None]
